FAERS Safety Report 5707958-9 (Version None)
Quarter: 2008Q2

REPORT INFORMATION
  Report Type: 
  Country: None (occurrence: None)
  Receive Date: 20080417
  Receipt Date: 20080416
  Transmission Date: 20081010
  Serious: Yes (Hospitalization)
  Sender: FDA-Public Use
  Company Number: US-RB-000774-08

PATIENT
  Sex: Male

DRUGS (3)
  1. SUBOXONE [Suspect]
     Dosage: FILM FORMULATION
     Route: 002
     Dates: start: 20080304
  2. NEURONTIN [Concomitant]
     Indication: PAIN
     Route: 048
     Dates: start: 20071101
  3. XANAX [Concomitant]
     Indication: STRESS
     Route: 048
     Dates: start: 20071101

REACTIONS (1)
  - ACCIDENT [None]
